FAERS Safety Report 8613923-4 (Version None)
Quarter: 2012Q3

REPORT INFORMATION
  Report Type: 
  Country: None (occurrence: None)
  Receive Date: 20120823
  Receipt Date: 20120810
  Transmission Date: 20120928
  Serious: Yes (Hospitalization, Disabling, Other)
  Sender: FDA-Public Use
  Company Number: US-009507513-1203USA03299

PATIENT

DRUGS (10)
  1. FOSAMAX PLUS D [Suspect]
     Indication: OSTEOPOROSIS
     Dosage: 70/2800 QW
     Route: 048
     Dates: start: 20050401, end: 20090301
  2. LIPITOR [Concomitant]
     Indication: BLOOD CHOLESTEROL
     Dates: start: 19950101
  3. ALLEGRA [Concomitant]
     Indication: HYPERSENSITIVITY
  4. NASACORT [Concomitant]
     Indication: HYPERSENSITIVITY
  5. CALCIUM (UNSPECIFIED) [Concomitant]
     Indication: OSTEOPOROSIS
  6. ACTONEL [Concomitant]
     Indication: OSTEOPOROSIS
     Dosage: 35 MG, UNK
     Route: 048
     Dates: start: 20090608, end: 20101210
  7. FOSAMAX [Suspect]
     Indication: OSTEOPENIA
     Dosage: 70 MG, QW
     Route: 048
     Dates: start: 19970101, end: 20090608
  8. FOSAMAX [Suspect]
     Indication: OSTEOPOROSIS
     Dosage: 10 MG, QD
     Route: 048
     Dates: start: 19970101, end: 20090608
  9. FOSAMAX PLUS D [Suspect]
     Indication: OSTEOPENIA
  10. FOSAMAX [Suspect]
     Dosage: 70 QW
     Route: 048
     Dates: start: 20081204, end: 20090501

REACTIONS (51)
  - VERTEBROPLASTY [None]
  - PELVIC FRACTURE [None]
  - BONE DISORDER [None]
  - SPINAL DISORDER [None]
  - MENISCUS LESION [None]
  - LOW TURNOVER OSTEOPATHY [None]
  - SPINAL FUSION SURGERY [None]
  - LUMBAR VERTEBRAL FRACTURE [None]
  - EXOSTOSIS [None]
  - JOINT DISLOCATION [None]
  - ROAD TRAFFIC ACCIDENT [None]
  - HYPOAESTHESIA [None]
  - HIP FRACTURE [None]
  - KYPHOSIS [None]
  - ARTHRITIS [None]
  - CONSTIPATION [None]
  - SPLEEN DISORDER [None]
  - PATELLOFEMORAL PAIN SYNDROME [None]
  - INJURY [None]
  - PACKED RED BLOOD CELL TRANSFUSION [None]
  - FRACTURE [None]
  - VERTEBRAL FORAMINAL STENOSIS [None]
  - PHLEBITIS [None]
  - DIZZINESS [None]
  - SPINAL FRACTURE [None]
  - ADVERSE EVENT [None]
  - FALL [None]
  - GAIT DISTURBANCE [None]
  - SPINAL COMPRESSION FRACTURE [None]
  - BACK PAIN [None]
  - FLATULENCE [None]
  - FEMUR FRACTURE [None]
  - GASTRIC CANCER [None]
  - METASTASES TO SPINE [None]
  - OSTEOPOROSIS [None]
  - ARTHRALGIA [None]
  - OSTEOARTHRITIS [None]
  - SURGERY [None]
  - INTRAMEDULLARY ROD INSERTION [None]
  - FORAMINOTOMY [None]
  - SPINAL LAMINECTOMY [None]
  - STRESS FRACTURE [None]
  - HYPERTENSION [None]
  - ADENOMA BENIGN [None]
  - SCOLIOSIS [None]
  - INTERVERTEBRAL DISC DISORDER [None]
  - GASTROOESOPHAGEAL REFLUX DISEASE [None]
  - GASTROINTESTINAL STROMAL TUMOUR [None]
  - SPINAL OSTEOARTHRITIS [None]
  - INTERVERTEBRAL DISC PROTRUSION [None]
  - BREAST DISORDER FEMALE [None]
